FAERS Safety Report 4763619-4 (Version None)
Quarter: 2005Q3

REPORT INFORMATION
  Report Type: 
  Country: None (occurrence: None)
  Receive Date: 20050901
  Receipt Date: 20050726
  Transmission Date: 20060218
  Serious: No
  Sender: FDA-Public Use
  Company Number: 200511495BWH

PATIENT
  Age: 49 Year
  Sex: Male

DRUGS (2)
  1. LEVITRA [Suspect]
     Indication: ERECTILE DYSFUNCTION
     Dosage: 20 MG QD ORAL
     Route: 048
     Dates: start: 20050722
  2. LEVITRA [Suspect]
     Indication: ERECTILE DYSFUNCTION
     Dosage: 20 MG QD ORAL
     Route: 048
     Dates: start: 20050723

REACTIONS (2)
  - HEADACHE [None]
  - MUSCLE TIGHTNESS [None]
